FAERS Safety Report 9307848 (Version 2)
Quarter: 2013Q4

REPORT INFORMATION
  Report Type: Spontaneous
  Country: US (occurrence: US)
  Receive Date: 20130524
  Receipt Date: 20131105
  Transmission Date: 20140711
  Serious: Yes (Life-Threatening, Hospitalization)
  Sender: FDA-Public Use
  Company Number: US-BAYER-2013-062586

PATIENT
  Age: 36 Year
  Sex: Female
  Weight: 97.51 kg

DRUGS (2)
  1. MIRENA [Suspect]
     Indication: CONTRACEPTION
     Dosage: 20 MCG/24HR, CONT
     Route: 015
     Dates: start: 20060905, end: 20090526
  2. DPT [Concomitant]
     Dosage: UNK
     Route: 030
     Dates: start: 20090508

REACTIONS (8)
  - Uterine perforation [None]
  - Pain [None]
  - Injury [None]
  - General physical health deterioration [None]
  - Anxiety [None]
  - Anhedonia [None]
  - Stress [None]
  - Depression [None]
